FAERS Safety Report 7091238-6 (Version None)
Quarter: 2010Q4

REPORT INFORMATION
  Report Type: 
  Country: None (occurrence: None)
  Receive Date: 20101109
  Receipt Date: 20101028
  Transmission Date: 20110411
  Serious: Yes (Hospitalization)
  Sender: FDA-Public Use
  Company Number: JP-ROCHE-738906

PATIENT
  Sex: Male

DRUGS (3)
  1. CAPECITABINE [Suspect]
     Indication: RECTAL CANCER
     Dosage: XELODA 300(CAPECITABINE), NOTE: IT IS ONE ADMINISTERING WEEKLY HOLIDAY MEDICINE FOR TWO WEEKS.
     Route: 048
     Dates: start: 20100625, end: 20101006
  2. BEVACIZUMAB [Suspect]
     Indication: RECTAL CANCER
     Dosage: AVASTIN(BEVACIZUMAB)
     Route: 041
     Dates: start: 20100625, end: 20100922
  3. OXALIPLATIN [Suspect]
     Indication: RECTAL CANCER
     Dosage: ELPLAT(OXALIPLATIN)
     Route: 041
     Dates: start: 20100625, end: 20100922

REACTIONS (3)
  - HAEMOLYTIC ANAEMIA [None]
  - NEUROPATHY PERIPHERAL [None]
  - PALMAR-PLANTAR ERYTHRODYSAESTHESIA SYNDROME [None]
